FAERS Safety Report 5954316-8 (Version None)
Quarter: 2008Q4

REPORT INFORMATION
  Report Type: 
  Country: None (occurrence: None)
  Receive Date: 20081113
  Receipt Date: 20081113
  Transmission Date: 20090506
  Serious: Yes (Other)
  Sender: FDA-Public Use
  Company Number: None

PATIENT
  Age: 62 Year
  Sex: Female
  Weight: 81.6475 kg

DRUGS (1)
  1. XOPENEX HFA [Suspect]
     Indication: ASTHMA
     Dosage: 45 MCG 2X2 INHAL
     Route: 055
     Dates: start: 20081001, end: 20081112

REACTIONS (4)
  - CONDITION AGGRAVATED [None]
  - DRUG INEFFECTIVE [None]
  - OBSTRUCTIVE AIRWAYS DISORDER [None]
  - PRODUCT QUALITY ISSUE [None]
